FAERS Safety Report 7217645-6 (Version None)
Quarter: 2011Q1

REPORT INFORMATION
  Report Type: 
  Country: None (occurrence: None)
  Receive Date: 20110110
  Receipt Date: 20110103
  Transmission Date: 20110831
  Serious: Yes (Death)
  Sender: FDA-Public Use
  Company Number: DE-ROCHE-751662

PATIENT
  Age: 45 Year
  Sex: Female

DRUGS (1)
  1. AVASTIN [Suspect]
     Indication: BREAST CANCER
     Dosage: FREQUENCY: ONE CURE
     Route: 042
     Dates: start: 20100922, end: 20100922

REACTIONS (3)
  - GENERAL PHYSICAL HEALTH DETERIORATION [None]
  - BREAST CANCER [None]
  - NEOPLASM MALIGNANT [None]
